FAERS Safety Report 6812710-7 (Version None)
Quarter: 2010Q3

REPORT INFORMATION
  Report Type: 
  Country: None (occurrence: None)
  Receive Date: 20100701
  Receipt Date: 20100618
  Transmission Date: 20110219
  Serious: Yes (Other)
  Sender: FDA-Public Use
  Company Number: A0833395A

PATIENT
  Sex: Male

DRUGS (10)
  1. AVANDIA [Suspect]
     Indication: DIABETES MELLITUS
     Dosage: 4MG TWICE PER DAY
     Route: 048
     Dates: start: 20020114, end: 20080101
  2. COREG [Concomitant]
  3. GLUCOPHAGE [Concomitant]
  4. ISOSORBIDE DINITRATE [Concomitant]
  5. ZOCOR [Concomitant]
  6. IMDUR [Concomitant]
  7. ZOCOR [Concomitant]
  8. COREG [Concomitant]
  9. GLUCOPHAGE [Concomitant]
  10. AMBIEN [Concomitant]

REACTIONS (4)
  - ANGINA PECTORIS [None]
  - CARDIOVASCULAR DISORDER [None]
  - CORONARY ARTERY DISEASE [None]
  - INTRACARDIAC THROMBUS [None]
